FAERS Safety Report 6860383-X (Version None)
Quarter: 2010Q3

REPORT INFORMATION
  Report Type: 
  Country: None (occurrence: None)
  Receive Date: 20100720
  Receipt Date: 20100714
  Transmission Date: 20110219
  Serious: No
  Sender: FDA-Public Use
  Company Number: US-ROCHE-692614

PATIENT
  Sex: Female

DRUGS (1)
  1. ISOTRETINOIN [Suspect]
     Indication: PRODUCT USED FOR UNKNOWN INDICATION
     Dosage: TAKEN ALTERNATIVELY. THE PATIENT WAS DISPENSED ACCUTANE 20 MG AND 40 MG CAPSULE ON 21 DECEMBER 2009.
     Route: 048
     Dates: start: 20091221, end: 20100204

REACTIONS (2)
  - NO ADVERSE EVENT [None]
  - PREGNANCY [None]
